FAERS Safety Report 6008519-7 (Version None)
Quarter: 2008Q4

REPORT INFORMATION
  Report Type: 
  Country: None (occurrence: None)
  Receive Date: 20081217
  Receipt Date: 20081205
  Transmission Date: 20090506
  Serious: Yes (Hospitalization, Other)
  Sender: FDA-Public Use
  Company Number: FR-ELI_LILLY_AND_COMPANY-FR200806004077

PATIENT
  Age: 59 Year
  Sex: Female
  Weight: 61 kg

DRUGS (11)
  1. CYMBALTA [Suspect]
     Indication: DEPRESSION
     Dosage: 60 MG, DAILY (1/D)
     Route: 048
     Dates: start: 20080415, end: 20080503
  2. CYMBALTA [Suspect]
     Dosage: 60 MG, DAILY (1/D)
     Route: 048
     Dates: start: 20080505, end: 20080604
  3. TEMESTA [Concomitant]
     Dosage: 2.5 MG, DAILY (1/D)
     Route: 048
  4. IXPRIM [Concomitant]
     Dosage: UNK, UNKNOWN
     Route: 048
  5. CELIPROLOL [Concomitant]
     Dosage: 100 MG, DAILY (1/D)
     Route: 048
  6. ENDOTELON                          /00811401/ [Concomitant]
     Dosage: 300 MG, DAILY (1/D)
     Route: 048
  7. LEVOTHYROXINE SODIUM [Concomitant]
     Dosage: 50 UG, DAILY (1/D)
     Route: 048
  8. RIVOTRIL [Concomitant]
     Dosage: 2 MG, DAILY (1/D)
     Route: 048
  9. LYRICA [Concomitant]
     Dosage: 300 MG, DAILY (1/D)
     Route: 048
  10. TRANSIPEG [Concomitant]
     Dosage: UNK, UNKNOWN
     Route: 048
  11. DICETEL [Concomitant]
     Dosage: UNK, UNKNOWN
     Route: 048

REACTIONS (1)
  - EYE HAEMORRHAGE [None]
